FAERS Safety Report 7530333-1 (Version None)
Quarter: 2011Q2

REPORT INFORMATION
  Report Type: 
  Country: None (occurrence: None)
  Receive Date: 20110607
  Receipt Date: 20110531
  Transmission Date: 20111010
  Serious: Yes (Hospitalization)
  Sender: FDA-Public Use
  Company Number: US-B.I. PHARMACEUTICALS,INC./RIDGEFIELD-2010-BP-14559BP

PATIENT
  Sex: Male

DRUGS (2)
  1. MULTAQ [Suspect]
     Indication: ATRIAL FIBRILLATION
     Dosage: 800 MG
     Route: 048
     Dates: start: 20101111
  2. PRADAXA [Suspect]
     Dates: start: 20101113, end: 20101203

REACTIONS (7)
  - ASTHENIA [None]
  - FLUID RETENTION [None]
  - WEIGHT INCREASED [None]
  - WEIGHT DECREASED [None]
  - EPISTAXIS [None]
  - DYSPNOEA [None]
  - HAEMOGLOBIN DECREASED [None]
